FAERS Safety Report 5413968-1 (Version None)
Quarter: 2007Q3

REPORT INFORMATION
  Report Type: 
  Country: None (occurrence: None)
  Receive Date: 20070814
  Receipt Date: 20070807
  Transmission Date: 20080115
  Serious: Yes (Other)
  Sender: FDA-Public Use
  Company Number: CN-BOEHRINGER INGELHEIM PHARMACEUTICALS, INC.-2007-DE-04677GD

PATIENT
  Age: 38 Year
  Sex: Female

DRUGS (4)
  1. DIPYRIDAMOLE [Suspect]
     Indication: MALIGNANT ATROPHIC PAPULOSIS
  2. WARFARIN SODIUM [Suspect]
     Indication: MALIGNANT ATROPHIC PAPULOSIS
  3. LIPOPROSTAGLANDIN E1 [Suspect]
     Indication: MALIGNANT ATROPHIC PAPULOSIS
  4. ANTIBIOTICS [Concomitant]

REACTIONS (1)
  - DRUG INEFFECTIVE [None]
